FAERS Safety Report 18374558 (Version 1)
Quarter: 2020Q4

REPORT INFORMATION
  Report Type: Spontaneous
  Country: MX (occurrence: MX)
  Receive Date: 20201012
  Receipt Date: 20201012
  Transmission Date: 20210114
  Serious: Yes (Death, Hospitalization)
  Sender: FDA-Public Use
  Company Number: MX-BAUSCH-BL-2020-028383

PATIENT
  Age: 71 Year
  Sex: Female

DRUGS (4)
  1. CEFTRIAXONE. [Concomitant]
     Active Substance: CEFTRIAXONE
     Indication: AMOEBIC BRAIN ABSCESS
     Route: 042
  2. DEXAMETHASONE. [Suspect]
     Active Substance: DEXAMETHASONE
     Indication: AMOEBIC BRAIN ABSCESS
     Route: 042
     Dates: start: 201809
  3. PREDNISOLONE. [Suspect]
     Active Substance: PREDNISOLONE
     Indication: AMOEBIC BRAIN ABSCESS
     Route: 065
     Dates: start: 201809
  4. METRONIDAZOLE. [Concomitant]
     Active Substance: METRONIDAZOLE
     Indication: AMOEBIC BRAIN ABSCESS
     Route: 042

REACTIONS (2)
  - Condition aggravated [Fatal]
  - Amoebic brain abscess [Fatal]

NARRATIVE: CASE EVENT DATE: 201810
